FAERS Safety Report 9356323 (Version 3)
Quarter: 2013Q3

REPORT INFORMATION
  Report Type: Report from Study
  Country: US (occurrence: US)
  Receive Date: 20130619
  Receipt Date: 20130809
  Transmission Date: 20140515
  Serious: Yes (Hospitalization, Other)
  Sender: FDA-Public Use
  Company Number: US-ABBOTT-13P-163-1105883-00

PATIENT
  Sex: Female
  Weight: 68.1 kg

DRUGS (9)
  1. HUMIRA [Suspect]
     Indication: CROHN^S DISEASE
     Dates: start: 20091226, end: 201203
  2. HUMIRA [Suspect]
     Dates: start: 20130618
  3. ZOFRAN [Concomitant]
     Indication: NAUSEA
  4. ZOFRAN [Concomitant]
     Indication: VOMITING
  5. DONNATAL [Concomitant]
     Indication: ABDOMINAL PAIN
  6. LORATADINE [Concomitant]
     Indication: NAUSEA
  7. TYLENOL [Concomitant]
     Indication: PRODUCT USED FOR UNKNOWN INDICATION
  8. VITAMINS [Concomitant]
     Indication: PRODUCT USED FOR UNKNOWN INDICATION
  9. AZATHIOPRINE [Concomitant]
     Indication: CROHN^S DISEASE
     Dates: start: 2008

REACTIONS (5)
  - Small intestinal obstruction [Recovered/Resolved]
  - Small intestinal stenosis [Unknown]
  - Herpes zoster [Recovered/Resolved]
  - Intestinal fibrosis [Recovering/Resolving]
  - Abdominal adhesions [Recovering/Resolving]
